FAERS Safety Report 24415463 (Version 1)
Quarter: 2024Q4

REPORT INFORMATION
  Report Type: Spontaneous
  Country: FR (occurrence: FR)
  Receive Date: 20241009
  Receipt Date: 20241009
  Transmission Date: 20250114
  Serious: Yes (Life-Threatening)
  Sender: pharmaAND
  Company Number: FR-AFSSAPS-BS2024000651

PATIENT
  Age: 81 Year
  Sex: Female
  Weight: 90 kg

DRUGS (1)
  1. PEGASYS [Suspect]
     Active Substance: PEGINTERFERON ALFA-2A
     Indication: Cutaneous T-cell lymphoma stage IV
     Dosage: 135 MICROGRAM EVERY 1 WEEK(S)
     Route: 058
     Dates: start: 20221219, end: 20240709

REACTIONS (3)
  - Thrombosis [Recovered/Resolved]
  - Off label use [Recovered/Resolved]
  - Cutaneous T-cell lymphoma stage IV [Recovered/Resolved]

NARRATIVE: CASE EVENT DATE: 20240703
